FAERS Safety Report 8180251-3 (Version None)
Quarter: 2012Q1

REPORT INFORMATION
  Report Type: 
  Country: None (occurrence: None)
  Receive Date: 20120302
  Receipt Date: 20110215
  Transmission Date: 20120608
  Serious: No
  Sender: FDA-Public Use
  Company Number: US-GLAXOSMITHKLINE-A0913778A

PATIENT
  Age: 89 Year
  Sex: Male

DRUGS (2)
  1. NO CONCURRENT MEDICATION [Concomitant]
  2. CLOBETASOL PROPIONATE [Suspect]
     Indication: SCAB
     Dosage: 1APP ALTERNATE DAYS
     Route: 061
     Dates: start: 20101201

REACTIONS (1)
  - DRUG INEFFECTIVE [None]
